FAERS Safety Report 5307652-2 (Version None)
Quarter: 2007Q2

REPORT INFORMATION
  Report Type: 
  Country: None (occurrence: None)
  Receive Date: 20070418
  Receipt Date: 20070405
  Transmission Date: 20071010
  Serious: Yes (Other)
  Sender: FDA-Public Use
  Company Number: 6031818

PATIENT
  Age: 58 Year
  Sex: Male

DRUGS (2)
  1. EUTHYROX 50 (LEVOTHYROXINE SODIUM) [Suspect]
     Indication: HYPOTHYROIDISM
  2. TOREM (TORASEMIDE) [Concomitant]

REACTIONS (1)
  - ERECTILE DYSFUNCTION [None]
